FAERS Safety Report 6975479-1 (Version None)
Quarter: 2010Q3

REPORT INFORMATION
  Report Type: 
  Country: None (occurrence: None)
  Receive Date: 20100910
  Receipt Date: 20100831
  Transmission Date: 20110219
  Serious: Yes (Other)
  Sender: FDA-Public Use
  Company Number: BR-BAYER-201017676LA

PATIENT
  Age: 44 Year
  Sex: Male
  Weight: 85 kg

DRUGS (6)
  1. BETAFERON [Suspect]
     Indication: MULTIPLE SCLEROSIS
     Dosage: BETAJECT
     Route: 058
     Dates: start: 19990101
  2. HORSE CHESTNUT [Concomitant]
     Indication: VARICOSE VEIN
     Dosage: TOTAL DAILY DOSE: 1 DF
     Route: 048
     Dates: start: 20050101
  3. OMEPRAZOLE [Concomitant]
     Indication: GASTROOESOPHAGEAL REFLUX DISEASE
     Dosage: TOTAL DAILY DOSE: 20 MG  UNIT DOSE: 20 MG
     Route: 048
     Dates: start: 19990101
  4. AMITRIPTYLINE HCL [Concomitant]
     Indication: STRESS
     Dosage: TOTAL DAILY DOSE: 1 DF
     Route: 048
     Dates: start: 19990801
  5. SIMVASTATIN [Concomitant]
     Indication: BLOOD CHOLESTEROL INCREASED
     Dosage: TOTAL DAILY DOSE: 1 DF
     Route: 048
     Dates: start: 19970101
  6. METFORMIN HCL [Concomitant]
     Indication: BLOOD GLUCOSE INCREASED
     Dosage: TOTAL DAILY DOSE: 1 DF
     Route: 048
     Dates: start: 20100601

REACTIONS (8)
  - BLOOD TEST ABNORMAL [None]
  - CHEST PAIN [None]
  - HEPATIC PAIN [None]
  - HEPATIC STEATOSIS [None]
  - INJECTION SITE HAEMATOMA [None]
  - INJECTION SITE MASS [None]
  - INJECTION SITE PAIN [None]
  - MULTIPLE SCLEROSIS [None]
